FAERS Safety Report 5376557-3 (Version None)
Quarter: 2007Q2

REPORT INFORMATION
  Report Type: 
  Country: None (occurrence: None)
  Receive Date: 20070629
  Receipt Date: 20070615
  Transmission Date: 20071010
  Serious: Yes (Other)
  Sender: FDA-Public Use
  Company Number: FSC_00122_2007

PATIENT
  Age: 86 Year
  Sex: Male
  Weight: 64 kg

DRUGS (6)
  1. VERAPAMIL (VERAPAMIL)  120MG [Suspect]
     Indication: ATRIAL FIBRILLATION
     Dates: start: 20070504, end: 20070508
  2. WARFARIN SODIUM [Suspect]
  3. PREDNISOLONE [Concomitant]
  4. METHOTREXATE [Concomitant]
  5. PRAVASTATIN [Concomitant]
  6. ASPIRIN [Concomitant]

REACTIONS (3)
  - ASTHENIA [None]
  - DRUG INTERACTION POTENTIATION [None]
  - INTERNATIONAL NORMALISED RATIO INCREASED [None]
